FAERS Safety Report 4429357-2 (Version None)
Quarter: 2004Q3

REPORT INFORMATION
  Report Type: 
  Country: None (occurrence: None)
  Receive Date: 20040819
  Receipt Date: 20040810
  Transmission Date: 20050211
  Serious: Yes (Hospitalization, Disabling)
  Sender: FDA-Public Use
  Company Number: JP-JNJFOC-20040700484

PATIENT
  Sex: Male

DRUGS (2)
  1. RISPERDAL [Suspect]
     Indication: SCHIZOPHRENIA
     Route: 049
     Dates: start: 20040315, end: 20040322
  2. LORAZEPAM [Concomitant]
     Route: 049

REACTIONS (6)
  - ASTHENOPIA [None]
  - BRAIN STEM HAEMORRHAGE [None]
  - DIZZINESS [None]
  - HEMIPLEGIA [None]
  - INSOMNIA [None]
  - MUSCULOSKELETAL STIFFNESS [None]
